FAERS Safety Report 9498446 (Version 2)
Quarter: 2013Q3

REPORT INFORMATION
  Report Type: Spontaneous
  Country: NO (occurrence: NO)
  Receive Date: 20130904
  Receipt Date: 20130906
  Transmission Date: 20140515
  Serious: Yes (Hospitalization, Other)
  Sender: FDA-Public Use
  Company Number: NO-GLAXOSMITHKLINE-B0919366A

PATIENT
  Age: 38 Year
  Sex: Male

DRUGS (1)
  1. ZYBAN [Suspect]
     Indication: SMOKING CESSATION THERAPY
     Dosage: 2TAB PER DAY
     Route: 048
     Dates: start: 20130321, end: 20130321

REACTIONS (4)
  - Loss of consciousness [Recovered/Resolved]
  - Confusional state [Recovered/Resolved]
  - Muscle spasms [Recovered/Resolved]
  - Tachycardia [Recovered/Resolved]
